FAERS Safety Report 21405135 (Version 5)
Quarter: 2022Q4

REPORT INFORMATION
  Report Type: Report from Study
  Country: US (occurrence: US)
  Receive Date: 20221004
  Receipt Date: 20221027
  Transmission Date: 20230113
  Serious: Yes (Hospitalization)
  Sender: FDA-Public Use
  Company Number: US-ABBVIE-4134761

PATIENT
  Age: 60 Year
  Sex: Male
  Weight: 65 kg

DRUGS (16)
  1. HUMIRA [Suspect]
     Active Substance: ADALIMUMAB
     Indication: Colitis ulcerative
     Route: 058
     Dates: start: 20131104, end: 20161226
  2. HUMIRA [Suspect]
     Active Substance: ADALIMUMAB
     Route: 058
     Dates: start: 20161228
  3. AZATHIOPRINE [Suspect]
     Active Substance: AZATHIOPRINE
     Indication: Colitis ulcerative
     Route: 048
     Dates: start: 201310, end: 20161224
  4. AZATHIOPRINE [Suspect]
     Active Substance: AZATHIOPRINE
     Indication: Colitis ulcerative
     Route: 048
     Dates: start: 20161228
  5. ALLOPURINOL [Concomitant]
     Active Substance: ALLOPURINOL
     Indication: Colitis ulcerative
     Route: 048
     Dates: start: 20141003
  6. ASPIRIN [Concomitant]
     Active Substance: ASPIRIN
     Indication: Coronary artery disease
     Route: 048
     Dates: start: 2000
  7. LOPRESSOR [Concomitant]
     Active Substance: METOPROLOL TARTRATE
     Indication: Coronary artery disease
     Route: 048
     Dates: start: 2000
  8. LIPITOR [Concomitant]
     Active Substance: ATORVASTATIN CALCIUM
     Indication: Coronary artery disease
     Route: 048
     Dates: start: 2000
  9. VITAMIN D3 [Concomitant]
     Active Substance: CHOLECALCIFEROL
     Indication: Vitamin D deficiency
     Dosage: DOSAGE: 1000 UNITS
     Route: 048
     Dates: start: 2014
  10. IMURAN [Concomitant]
     Active Substance: AZATHIOPRINE
     Indication: Immunosuppressant drug therapy
     Route: 048
     Dates: start: 20140603, end: 20140929
  11. IMURAN [Concomitant]
     Active Substance: AZATHIOPRINE
     Indication: Immunosuppressant drug therapy
     Route: 048
     Dates: start: 20140929, end: 20141008
  12. IMURAN [Concomitant]
     Active Substance: AZATHIOPRINE
     Indication: Immunosuppressant drug therapy
     Route: 048
     Dates: start: 20141008
  13. FOLIC ACID [Concomitant]
     Active Substance: FOLIC ACID
     Indication: Folate deficiency
     Dates: start: 20141107
  14. TREXALL [Concomitant]
     Active Substance: METHOTREXATE SODIUM
     Indication: Immunosuppressant drug therapy
     Route: 048
     Dates: start: 20141107, end: 20160619
  15. TREXALL [Concomitant]
     Active Substance: METHOTREXATE SODIUM
     Indication: Immunosuppressant drug therapy
     Route: 058
     Dates: start: 20160619, end: 20171025
  16. CALCIUM [Concomitant]
     Active Substance: CALCIUM
     Indication: Calcium deficiency
     Route: 048
     Dates: start: 2011

REACTIONS (4)
  - Pyelonephritis [Recovered/Resolved]
  - Nephrolithiasis [Recovered/Resolved]
  - Hydronephrosis [Recovered/Resolved]
  - Clostridium test positive [Recovered/Resolved]

NARRATIVE: CASE EVENT DATE: 20161201
